FAERS Safety Report 9851073 (Version 1)
Quarter: 2014Q1

REPORT INFORMATION
  Report Type: Spontaneous
  Country: US (occurrence: US)
  Receive Date: 20140128
  Receipt Date: 20140128
  Transmission Date: 20141002
  Serious: Yes (Hospitalization)
  Sender: FDA-Public Use
  Company Number: US-B.I. PHARMACEUTICALS,INC./RIDGEFIELD-2014-BI-03294BP

PATIENT
  Age: 51 Year
  Sex: Female
  Weight: 100 kg

DRUGS (16)
  1. SPIRIVA [Suspect]
     Indication: CHRONIC OBSTRUCTIVE PULMONARY DISEASE
     Dosage: 18 MCG
     Route: 048
     Dates: start: 2005
  2. SPIRIVA [Suspect]
     Dosage: 18 MCG
     Route: 055
     Dates: start: 2005
  3. LYRICA [Concomitant]
     Indication: FIBROMYALGIA
     Dosage: 150 MG
     Route: 048
  4. SKELAXIN [Concomitant]
     Indication: MUSCLE RELAXANT THERAPY
     Dosage: 2400 MG
     Route: 048
  5. CLONAZEPAM [Concomitant]
     Indication: ANXIETY
     Route: 048
  6. VESICARE [Concomitant]
     Indication: BLADDER DISCOMFORT
     Dosage: 5 MG
     Route: 048
  7. RESTASIS [Concomitant]
     Indication: DRY EYE
  8. ADVAIR [Concomitant]
     Dosage: FORMULATION: (INHALATION SOLUTION)
     Route: 055
  9. RELPAX [Concomitant]
     Indication: MIGRAINE
     Route: 048
  10. NORCO [Concomitant]
     Indication: PAIN
     Dosage: STRENGTH: 7.5MG/325 MG; DAILY DOSE: 22.5 MG/975 MG
     Route: 048
  11. SYNTHROID [Concomitant]
     Indication: THYROID NEOPLASM
     Dosage: STRENGTH: 0.025 MCG; DAILY DOSE: 0.025 MCG
     Route: 048
  12. ZETIA [Concomitant]
     Indication: BLOOD CHOLESTEROL INCREASED
     Route: 048
  13. CYMBALTA [Concomitant]
     Indication: DEPRESSION
     Dosage: 120 MG
     Route: 048
  14. LISINOPRIL [Concomitant]
     Indication: HYPERTENSION
     Dosage: 5 MG
     Route: 048
  15. PROAIR [Concomitant]
     Dosage: (INHALATION AEROSOL)
     Route: 055
  16. DEXILANT [Concomitant]
     Indication: GASTROOESOPHAGEAL REFLUX DISEASE
     Dosage: 60 MG
     Route: 048

REACTIONS (6)
  - Renal failure [Recovered/Resolved]
  - Pneumonia [Recovered/Resolved]
  - Streptococcal bacteraemia [Recovered/Resolved]
  - Cholelithiasis [Recovered/Resolved]
  - Hiatus hernia [Not Recovered/Not Resolved]
  - Incorrect route of drug administration [Recovered/Resolved]
